FAERS Safety Report 7180772-6 (Version None)
Quarter: 2010Q4

REPORT INFORMATION
  Report Type: 
  Country: None (occurrence: None)
  Receive Date: 20101221
  Receipt Date: 20101214
  Transmission Date: 20110411
  Serious: Yes (Other)
  Sender: FDA-Public Use
  Company Number: CA-ABBOTT-10P-028-0691515-00

PATIENT
  Sex: Male

DRUGS (1)
  1. BIAXIN [Suspect]
     Indication: PRODUCT USED FOR UNKNOWN INDICATION
     Dates: start: 20090228

REACTIONS (8)
  - ANXIETY [None]
  - DELIRIUM [None]
  - DIZZINESS [None]
  - HALLUCINATION [None]
  - MAGICAL THINKING [None]
  - PALPITATIONS [None]
  - PANIC ATTACK [None]
  - PSYCHOTIC DISORDER [None]
